FAERS Safety Report 4317130-5 (Version None)
Quarter: 2004Q1

REPORT INFORMATION
  Report Type: 
  Country: None (occurrence: None)
  Receive Date: 20040312
  Receipt Date: 20040303
  Transmission Date: 20041129
  Serious: Yes (Hospitalization)
  Sender: FDA-Public Use
  Company Number: 2004014588

PATIENT
  Age: 56 Year
  Sex: Female

DRUGS (6)
  1. SORTIS (ATORVASTATIN) [Suspect]
     Indication: DYSLIPIDAEMIA
     Dosage: 10 MG (DAILY), ORAL
     Route: 048
     Dates: start: 20030624, end: 20031021
  2. ACETYLSALICYLIC ACID SRT [Concomitant]
  3. ISOSORBIDE MONONITRATE [Concomitant]
  4. TRIMETAZIDINE HYDROCHLORIDE (TRIMETAZIDINE HYDROCHLORIDE) [Concomitant]
  5. SILYMARIN (SILYMARIN) [Concomitant]
  6. FUROSEMIDE [Concomitant]

REACTIONS (3)
  - EYELID OEDEMA [None]
  - FATIGUE [None]
  - MYALGIA [None]
